FAERS Safety Report 8785372 (Version 1)
Quarter: 2012Q4

REPORT INFORMATION
  Report Type: 
  Country: US (occurrence: US)
  Receive Date: 20120917
  Receipt Date: 20120917
  Transmission Date: 20130627
  Serious: No
  Sender: FDA-Public Use
  Company Number: US-PFIZER INC-2012227064

PATIENT
  Age: 40 Year
  Sex: Male
  Weight: 97.51 kg

DRUGS (5)
  1. CELEBREX [Suspect]
     Indication: SPONDYLITIS
     Dosage: 100 mg, 3x/day
     Dates: start: 2011, end: 2011
  2. CELEBREX [Suspect]
     Indication: ARTHRITIS
  3. ALBUTEROL [Concomitant]
     Indication: ASTHMA
     Dosage: UNK,inhaler
  4. LEXAPRO [Concomitant]
     Indication: DEPRESSION
     Dosage: 40 mg, daily
  5. LAMICTAL [Concomitant]
     Indication: BIPOLAR DISORDER
     Dosage: 100 mg, daily

REACTIONS (3)
  - Drug ineffective [Unknown]
  - Gait disturbance [Unknown]
  - Abdominal discomfort [Unknown]
